FAERS Safety Report 9614750 (Version 1)
Quarter: 2013Q4

REPORT INFORMATION
  Report Type: Spontaneous
  Country: US (occurrence: None)
  Receive Date: 20131009
  Receipt Date: 20131009
  Transmission Date: 20140711
  Serious: No
  Sender: FDA-Public Use
  Company Number: None

PATIENT
  Age: 44 Year
  Sex: Female
  Weight: 72.58 kg

DRUGS (1)
  1. ESCITALOPRAM [Suspect]
     Indication: DEPRESSION
     Dosage: 1 PILL ONCE DAILY TAKEN BY MOUTH
     Route: 048
     Dates: start: 20130910, end: 20131003

REACTIONS (9)
  - Night sweats [None]
  - Poor quality sleep [None]
  - Product substitution issue [None]
  - Gastrointestinal disorder [None]
  - Vertigo [None]
  - Affective disorder [None]
  - Anxiety [None]
  - Nausea [None]
  - Abnormal dreams [None]
